FAERS Safety Report 4988630-X (Version None)
Quarter: 2006Q2

REPORT INFORMATION
  Report Type: 
  Country: None (occurrence: None)
  Receive Date: 20060502
  Receipt Date: 20050930
  Transmission Date: 20061013
  Serious: Yes (Hospitalization)
  Sender: FDA-Public Use
  Company Number: GB-ROCHE-419468

PATIENT
  Age: 54 Year
  Sex: Male
  Weight: 65.8 kg

DRUGS (6)
  1. CAPECITABINE [Suspect]
     Route: 048
     Dates: start: 20050928, end: 20050928
  2. CAPECITABINE [Suspect]
     Route: 048
     Dates: start: 20050929
  3. AVASTIN [Suspect]
     Route: 042
     Dates: start: 20050928
  4. OXALIPLATIN [Suspect]
     Route: 042
     Dates: start: 20050928
  5. GRANISETRON [Concomitant]
  6. DEXAMETHASONE [Concomitant]

REACTIONS (3)
  - ANAPHYLACTIC REACTION [None]
  - LARYNGOSPASM [None]
  - VOMITING [None]
